FAERS Safety Report 14328753 (Version 2)
Quarter: 2017Q4

REPORT INFORMATION
  Report Type: Spontaneous
  Country: IT (occurrence: IT)
  Receive Date: 20171227
  Receipt Date: 20171227
  Transmission Date: 20180321
  Serious: Yes (Other)
  Sender: FDA-Public Use
  Company Number: IT-B.I. PHARMACEUTICALS,INC./RIDGEFIELD-2017-12-000224

PATIENT
  Age: 45 Year
  Sex: Male

DRUGS (2)
  1. TRAMADOL. [Concomitant]
     Active Substance: TRAMADOL
     Indication: ANALGESIC THERAPY
     Route: 048
  2. PRADAXA [Suspect]
     Active Substance: DABIGATRAN ETEXILATE MESYLATE
     Indication: THROMBOSIS PROPHYLAXIS
     Dosage: CUMULATIVE DOSE TO FIRST REACTION: 2 DOSAGE FORM
     Route: 048
     Dates: start: 20160708, end: 20171004

REACTIONS (3)
  - Deep vein thrombosis [Unknown]
  - Pelvic venous thrombosis [Unknown]
  - Thrombophlebitis superficial [Unknown]

NARRATIVE: CASE EVENT DATE: 20171004
